FAERS Safety Report 6645028-6 (Version None)
Quarter: 2010Q1

REPORT INFORMATION
  Report Type: 
  Country: None (occurrence: None)
  Receive Date: 20100322
  Receipt Date: 20100317
  Transmission Date: 20100710
  Serious: Yes (Death, Other)
  Sender: FDA-Public Use
  Company Number: PHHY2010GB03501

PATIENT
  Sex: Male

DRUGS (2)
  1. CLOZARIL [Suspect]
     Indication: PSYCHOTIC DISORDER
     Dosage: UNK
     Dates: start: 20090528
  2. CLOZARIL [Suspect]
     Indication: PARKINSON'S DISEASE

REACTIONS (2)
  - DEATH [None]
  - PARKINSON'S DISEASE [None]
